FAERS Safety Report 13029422 (Version 1)
Quarter: 2016Q4

REPORT INFORMATION
  Report Type: Spontaneous
  Country: US (occurrence: US)
  Receive Date: 20161215
  Receipt Date: 20161215
  Transmission Date: 20170207
  Serious: Yes (Other)
  Sender: FDA-Public Use
  Company Number: US-PAR PHARMACEUTICAL COMPANIES-2016SCPR016239

PATIENT
  Age: 14 Year
  Sex: Female

DRUGS (2)
  1. CLOTRIMAZOLE. [Concomitant]
     Active Substance: CLOTRIMAZOLE
     Indication: SICKLE CELL ANAEMIA
     Dosage: UNK UNK, UNKNOWN
     Route: 065
  2. HYDROXYUREA. [Suspect]
     Active Substance: HYDROXYUREA
     Indication: SICKLE CELL ANAEMIA
     Dosage: 1500 MG, DAILY
     Route: 065

REACTIONS (2)
  - Off label use [Unknown]
  - Chronic cutaneous lupus erythematosus [Recovering/Resolving]
